FAERS Safety Report 6546790-3 (Version None)
Quarter: 2010Q1

REPORT INFORMATION
  Report Type: 
  Country: None (occurrence: None)
  Receive Date: 20100119
  Receipt Date: 20100104
  Transmission Date: 20100710
  Serious: Yes (Death)
  Sender: FDA-Public Use
  Company Number: 2010AC000011

PATIENT
  Age: 30 Year
  Sex: Female

DRUGS (9)
  1. DIGOXIN [Suspect]
     Dosage: PO
     Route: 048
     Dates: start: 20070601
  2. TAMOXIFEN CITRATE [Concomitant]
  3. LEXAPRO [Concomitant]
  4. DIFLUCAN [Concomitant]
  5. FUROSEMIDE [Concomitant]
  6. POTASSIUM [Concomitant]
  7. METOPROLOL [Concomitant]
  8. LOTREL [Concomitant]
  9. AUGMENTIN [Concomitant]

REACTIONS (4)
  - ARRHYTHMIA [None]
  - CONGESTIVE CARDIOMYOPATHY [None]
  - FATIGUE [None]
  - TACHYCARDIA [None]
